FAERS Safety Report 9406329 (Version 1)
Quarter: 2013Q3

REPORT INFORMATION
  Report Type: Spontaneous
  Country: CO (occurrence: CO)
  Receive Date: 20130717
  Receipt Date: 20130717
  Transmission Date: 20140515
  Serious: Yes (Death, Other)
  Sender: FDA-Public Use
  Company Number: CO-PFIZER INC-2013208775

PATIENT
  Age: 72 Year
  Sex: Male

DRUGS (1)
  1. SUTENT [Suspect]
     Indication: RENAL CANCER METASTATIC
     Dosage: UNK
     Route: 048
     Dates: start: 2009, end: 2012

REACTIONS (8)
  - Myocardial infarction [Fatal]
  - Disease progression [Fatal]
  - Renal cancer metastatic [Fatal]
  - Peritonitis [Unknown]
  - Ocular hyperaemia [Unknown]
  - Vomiting [Unknown]
  - Diarrhoea [Unknown]
  - Hypertension [Unknown]
